FAERS Safety Report 20569044 (Version 3)
Quarter: 2022Q3

REPORT INFORMATION
  Report Type: Spontaneous
  Country: US (occurrence: None)
  Receive Date: 20220308
  Receipt Date: 20220728
  Transmission Date: 20221027
  Serious: No
  Sender: FDA-Public Use
  Company Number: US-ROCHE-2959232

PATIENT
  Age: 53 Year
  Sex: Female

DRUGS (2)
  1. ENSPRYNG [Suspect]
     Active Substance: SATRALIZUMAB-MWGE
     Indication: Neuromyelitis optica spectrum disorder
     Dosage: ONGOING: YES
     Route: 058
     Dates: start: 202011
  2. BOOSTER INJECTION (UNK INGREDIENTS) [Concomitant]
     Indication: COVID-19 immunisation
     Route: 065

REACTIONS (3)
  - Chills [Unknown]
  - Oropharyngeal pain [Unknown]
  - Migraine [Not Recovered/Not Resolved]

NARRATIVE: CASE EVENT DATE: 20220221
